FAERS Safety Report 9688108 (Version 2)
Quarter: 2014Q1

REPORT INFORMATION
  Report Type: Report from Study
  Country: JP (occurrence: JP)
  Receive Date: 20131114
  Receipt Date: 20140218
  Transmission Date: 20141002
  Serious: Yes (Other)
  Sender: FDA-Public Use
  Company Number: JP-VERTEX PHARMACEUTICALS INC-2013-011030

PATIENT
  Age: 49 Year
  Sex: Male

DRUGS (5)
  1. VX-950 (TELAPREVIR) [Suspect]
     Indication: CHRONIC HEPATITIS C
     Dosage: 1500 MG, QD
     Route: 048
     Dates: start: 20120914, end: 20121206
  2. PEGINTERFERON ALFA-2B [Suspect]
     Indication: CHRONIC HEPATITIS C
     Dosage: 1.7 ?G/KG, QW
     Route: 058
     Dates: start: 20120914, end: 20130301
  3. RIBAVIRIN [Suspect]
     Indication: CHRONIC HEPATITIS C
     Dosage: 600 MG, QD
     Route: 048
     Dates: start: 20120914, end: 20130301
  4. URSO [Concomitant]
     Dosage: 600 MG, QD
     Route: 048
     Dates: start: 20120727, end: 20130301
  5. PRIMPERAN [Concomitant]
     Dosage: UNK, PRN
     Route: 048
     Dates: start: 20120925

REACTIONS (1)
  - Injection site rash [Recovering/Resolving]
